FAERS Safety Report 20453780 (Version 1)
Quarter: 2022Q1

REPORT INFORMATION
  Report Type: Spontaneous
  Country: US (occurrence: None)
  Receive Date: 20220209
  Receipt Date: 20220209
  Transmission Date: 20220423
  Serious: Yes (Hospitalization)
  Sender: FDA-Public Use
  Company Number: None

PATIENT
  Age: 13 Year
  Sex: Female

DRUGS (7)
  1. BETHKIS [Suspect]
     Active Substance: TOBRAMYCIN
     Indication: Cystic fibrosis
     Dosage: OTHER FREQUENCY : 300 MG/4ML;?FREQUENCY: 1 VIAL VIA NEBULIZER TWICE DAILY FOR 14 DAYS ON, THEN 14 DA
     Route: 055
     Dates: start: 20160203
  2. BACLOFEN [Concomitant]
     Active Substance: BACLOFEN
  3. ERYPED [Concomitant]
     Active Substance: ERYTHROMYCIN ETHYLSUCCINATE
  4. GABAPENTIN [Concomitant]
     Active Substance: GABAPENTIN
  5. INHALER COMP MIS [Concomitant]
  6. PREVACID [Concomitant]
     Active Substance: LANSOPRAZOLE
  7. TRILEPTAL [Concomitant]

REACTIONS (1)
  - Respiratory distress [None]

NARRATIVE: CASE EVENT DATE: 20220202
